FAERS Safety Report 13496347 (Version 2)
Quarter: 2017Q2

REPORT INFORMATION
  Report Type: Report from Study
  Country: US (occurrence: US)
  Receive Date: 20170428
  Receipt Date: 20170428
  Transmission Date: 20170830
  Serious: Yes (Other)
  Sender: FDA-Public Use
  Company Number: US-JAZZ-2017-US-001775

PATIENT
  Sex: Male

DRUGS (14)
  1. ATENOLOL. [Concomitant]
     Active Substance: ATENOLOL
  2. XYREM [Suspect]
     Active Substance: SODIUM OXYBATE
     Indication: HYPERSOMNIA
     Dosage: 3 G, BID
     Route: 048
     Dates: start: 201611, end: 2016
  3. XYREM [Suspect]
     Active Substance: SODIUM OXYBATE
     Dosage: 3 G, BID
     Route: 048
     Dates: start: 201701
  4. OMEGA 3 FISH OIL                   /01334101/ [Concomitant]
     Active Substance: FISH OIL
  5. OXYBUTYNIN [Concomitant]
     Active Substance: OXYBUTYNIN
  6. PERCOCET [Concomitant]
     Active Substance: ACETAMINOPHEN\OXYCODONE HYDROCHLORIDE
  7. ALFUZOSIN HCL [Concomitant]
     Active Substance: ALFUZOSIN HYDROCHLORIDE
  8. ASPIRIN 81 [Concomitant]
     Active Substance: ASPIRIN
  9. LEXAPRO [Concomitant]
     Active Substance: ESCITALOPRAM OXALATE
  10. ADDERALL [Concomitant]
     Active Substance: AMPHETAMINE ASPARTATE\AMPHETAMINE SULFATE\DEXTROAMPHETAMINE SACCHARATE\DEXTROAMPHETAMINE SULFATE
  11. OXYBUTYNIN CHLORIDE. [Concomitant]
     Active Substance: OXYBUTYNIN CHLORIDE
  12. PROVIGIL [Concomitant]
     Active Substance: MODAFINIL
  13. VITAMIN D2 [Concomitant]
     Active Substance: ERGOCALCIFEROL
  14. OMEPRAZOLE                         /00661202/ [Concomitant]

REACTIONS (3)
  - Narcolepsy [Unknown]
  - Inappropriate schedule of drug administration [Unknown]
  - Therapeutic response decreased [Unknown]
